FAERS Safety Report 10305446 (Version 1)
Quarter: 2014Q3

REPORT INFORMATION
  Report Type: Spontaneous
  Country: US (occurrence: None)
  Receive Date: 20140710
  Receipt Date: 20140710
  Transmission Date: 20150326
  Serious: Yes (Other)
  Sender: FDA-Public Use
  Company Number: AUR-APL-2014-07065

PATIENT
  Age: 92 Year
  Sex: Male
  Weight: 74.8 kg

DRUGS (1)
  1. TERBINAFINE HYDROCHLORIDE. [Suspect]
     Active Substance: TERBINAFINE HYDROCHLORIDE
     Indication: FUNGAL INFECTION
     Dates: start: 20131212

REACTIONS (5)
  - Ageusia [None]
  - Asthenia [None]
  - Decreased appetite [None]
  - Drug ineffective [None]
  - Weight decreased [None]
